FAERS Safety Report 11906400 (Version 1)
Quarter: 2016Q1

REPORT INFORMATION
  Report Type: Spontaneous
  Country: US (occurrence: US)
  Receive Date: 20160111
  Receipt Date: 20160111
  Transmission Date: 20160526
  Serious: No
  Sender: FDA-Public Use
  Company Number: US-PFIZER INC-2015450343

PATIENT
  Age: 61 Year
  Sex: Female

DRUGS (1)
  1. SOMAVERT [Suspect]
     Active Substance: PEGVISOMANT

REACTIONS (3)
  - Product quality issue [Unknown]
  - Accidental exposure to product [Unknown]
  - Vision blurred [Unknown]

NARRATIVE: CASE EVENT DATE: 20151203
